FAERS Safety Report 8959646 (Version 4)
Quarter: 2013Q2

REPORT INFORMATION
  Report Type: Spontaneous
  Country: US (occurrence: US)
  Receive Date: 20121212
  Receipt Date: 20130416
  Transmission Date: 20140414
  Serious: Yes (Other)
  Sender: FDA-Public Use
  Company Number: US-PFIZER INC-2012310082

PATIENT
  Age: 62 Year
  Sex: Male

DRUGS (2)
  1. LIPITOR [Suspect]
     Indication: BLOOD CHOLESTEROL INCREASED
     Dosage: 80 MG, ONCE A DAY
     Route: 048
  2. TIKOSYN [Suspect]
     Indication: ARRHYTHMIA
     Dosage: 500 UG, TWO TIMES A DAY
     Route: 048

REACTIONS (1)
  - Osteoarthritis [Unknown]
